FAERS Safety Report 10077292 (Version 2)
Quarter: 2014Q2

REPORT INFORMATION
  Report Type: Spontaneous
  Country: US (occurrence: US)
  Receive Date: 20140414
  Receipt Date: 20140414
  Transmission Date: 20141212
  Serious: No
  Sender: FDA-Public Use
  Company Number: US-BANPHARM-20131269

PATIENT
  Age: 62 Year
  Sex: Female
  Weight: 86.18 kg

DRUGS (8)
  1. ALEVE LIQUID GELS 220 MG [Suspect]
     Indication: ARTHRITIS
     Dosage: 2 DF, EVERY OTHER DAY,
     Route: 048
     Dates: start: 20130421, end: 20130425
  2. BAYER ASPIRIN [Concomitant]
  3. ENDIOVAN [Concomitant]
  4. LIPITOR [Concomitant]
  5. PROZAC [Concomitant]
  6. HCTZ DIURETIC [Concomitant]
  7. PLAVIX [Concomitant]
  8. VITAMIN D [Concomitant]

REACTIONS (1)
  - Drug ineffective [Unknown]
